FAERS Safety Report 6897190-8 (Version None)
Quarter: 2010Q3

REPORT INFORMATION
  Report Type: 
  Country: None (occurrence: None)
  Receive Date: 20100802
  Receipt Date: 20070323
  Transmission Date: 20110219
  Serious: No
  Sender: FDA-Public Use
  Company Number: US-PFIZER INC-2007023646

PATIENT
  Sex: Male
  Weight: 78.5 kg

DRUGS (5)
  1. LYRICA [Suspect]
     Indication: POST HERPETIC NEURALGIA
     Dates: start: 20070301
  2. DARVOCET [Concomitant]
  3. HERBAL PREPARATION INGREDIENTS UNKNOWN [Concomitant]
  4. MULTI-VITAMINS [Concomitant]
  5. IBUPROFEN [Concomitant]

REACTIONS (4)
  - FATIGUE [None]
  - SOMNOLENCE [None]
  - VISION BLURRED [None]
  - WEIGHT INCREASED [None]
